FAERS Safety Report 21204803 (Version 1)
Quarter: 2022Q3

REPORT INFORMATION
  Report Type: Report from Study
  Country: CA (occurrence: CA)
  Receive Date: 20220812
  Receipt Date: 20220812
  Transmission Date: 20221027
  Serious: No
  Sender: FDA-Public Use
  Company Number: CA-BAXTER-2022BAX016412

PATIENT
  Age: 78 Year
  Sex: Male

DRUGS (1)
  1. CEFAZOLIN [Suspect]
     Active Substance: CEFAZOLIN
     Indication: Allergy test
     Dosage: 100 MG
     Route: 042

REACTIONS (1)
  - Urticaria [Recovered/Resolved]
